FAERS Safety Report 9227150 (Version 1)
Quarter: 2013Q2

REPORT INFORMATION
  Report Type: Spontaneous
  Country: US (occurrence: None)
  Receive Date: 20130411
  Receipt Date: 20130411
  Transmission Date: 20140414
  Serious: Yes (Death)
  Sender: FDA-Public Use
  Company Number: None

PATIENT
  Age: 62 Year
  Sex: Male
  Weight: 61.8 kg

DRUGS (1)
  1. PROTAMINE [Suspect]
     Dates: start: 20130401, end: 20130401

REACTIONS (3)
  - Cardiac arrest [None]
  - Cerebral disorder [None]
  - Cardiac failure [None]
